FAERS Safety Report 8160332-0 (Version None)
Quarter: 2012Q1

REPORT INFORMATION
  Report Type: 
  Country: None (occurrence: None)
  Receive Date: 20120223
  Receipt Date: 20120214
  Transmission Date: 20120608
  Serious: Yes (Other)
  Sender: FDA-Public Use
  Company Number: US-ABBOTT-12P-163-0905239-00

PATIENT
  Age: 59 Year
  Sex: Male

DRUGS (3)
  1. HUMIRA [Suspect]
     Indication: CROHN'S DISEASE
     Dates: start: 20100101
  2. ZOLOFT [Concomitant]
     Indication: ANXIETY
  3. ABILIFY [Concomitant]
     Indication: ANXIETY

REACTIONS (5)
  - OSTEOARTHRITIS [None]
  - PROSTATE CANCER [None]
  - ANXIETY [None]
  - CYST [None]
  - ARTHRALGIA [None]
